FAERS Safety Report 22132694 (Version 1)
Quarter: 2023Q1

REPORT INFORMATION
  Report Type: Spontaneous
  Country: US (occurrence: US)
  Receive Date: 20230323
  Receipt Date: 20230323
  Transmission Date: 20230417
  Serious: No
  Sender: FDA-Public Use
  Company Number: US-ALLERGAN-2236857US

PATIENT
  Age: 57 Year
  Sex: Male

DRUGS (2)
  1. LINZESS [Suspect]
     Active Substance: LINACLOTIDE
     Indication: Irritable bowel syndrome
     Dosage: 150 ?G, QD
     Route: 048
     Dates: start: 202301
  2. TRULANCE [Suspect]
     Active Substance: PLECANATIDE
     Indication: Product used for unknown indication

REACTIONS (5)
  - Asthenia [Unknown]
  - Abnormal behaviour [Not Recovered/Not Resolved]
  - Weight decreased [Unknown]
  - Diarrhoea [Unknown]
  - Dizziness [Unknown]

NARRATIVE: CASE EVENT DATE: 20230101
